FAERS Safety Report 4871052-X (Version None)
Quarter: 2005Q4

REPORT INFORMATION
  Report Type: 
  Country: None (occurrence: None)
  Receive Date: 20051229
  Receipt Date: 20051220
  Transmission Date: 20060501
  Serious: No
  Sender: FDA-Public Use
  Company Number: 2005-136132-NL

PATIENT
  Age: 75 Year
  Sex: Male

DRUGS (5)
  1. MIRTAZAPINE [Suspect]
     Indication: DEPRESSION
     Dosage: 30 MG ORAL
     Route: 048
     Dates: start: 20050101
  2. ALPRAZOLAM [Concomitant]
  3. CLONAZEPAM [Concomitant]
  4. HYDROXYZINE HYDROCHLORIDE [Concomitant]
  5. ESCITALOPRAM OXALATE [Concomitant]

REACTIONS (9)
  - DRUG EFFECT DECREASED [None]
  - EPISTAXIS [None]
  - FALL [None]
  - FEELING ABNORMAL [None]
  - HEADACHE [None]
  - INJURY [None]
  - LOSS OF CONSCIOUSNESS [None]
  - THERAPY NON-RESPONDER [None]
  - TOOTH FRACTURE [None]
